FAERS Safety Report 8809214 (Version 2)
Quarter: 2012Q4

REPORT INFORMATION
  Report Type: 
  Country: US (occurrence: US)
  Receive Date: 20120926
  Receipt Date: 20121024
  Transmission Date: 20130627
  Serious: No
  Sender: FDA-Public Use
  Company Number: US-ROXANE LABORATORIES, INC.-2012-RO-01811RO

PATIENT
  Sex: Female

DRUGS (1)
  1. BALSALAZIDE [Suspect]
     Dosage: 6750 mg
     Route: 048

REACTIONS (4)
  - Tongue discolouration [Unknown]
  - Stomatitis [Unknown]
  - Product taste abnormal [Unknown]
  - Product quality issue [Unknown]
